FAERS Safety Report 18417822 (Version 1)
Quarter: 2020Q4

REPORT INFORMATION
  Report Type: Spontaneous
  Country: US (occurrence: US)
  Receive Date: 20201023
  Receipt Date: 20201023
  Transmission Date: 20210114
  Serious: Yes (Hospitalization, Other)
  Sender: FDA-Public Use
  Company Number: US-DRREDDYS-USA/USA/20/0128253

PATIENT
  Age: 62 Year
  Sex: Male

DRUGS (5)
  1. GEMCITABINE. [Suspect]
     Active Substance: GEMCITABINE
     Indication: METASTASES TO PELVIS
  2. GEMCITABINE. [Suspect]
     Active Substance: GEMCITABINE
     Indication: METASTASES TO LYMPH NODES
  3. GEMCITABINE. [Suspect]
     Active Substance: GEMCITABINE
     Indication: METASTASES TO BONE
  4. GEMCITABINE. [Suspect]
     Active Substance: GEMCITABINE
     Indication: NON-SMALL CELL LUNG CANCER METASTATIC
  5. GEMCITABINE. [Suspect]
     Active Substance: GEMCITABINE
     Indication: METASTASES TO SPINE
     Route: 065

REACTIONS (11)
  - Anaemia [Recovered/Resolved]
  - Nephropathy toxic [Recovered/Resolved]
  - Thrombocytopenia [Recovered/Resolved]
  - Clostridium difficile colitis [Recovered/Resolved]
  - Haemolytic anaemia [Recovered/Resolved]
  - Haemolysis [Recovered/Resolved]
  - Renal tubular necrosis [Recovered/Resolved]
  - Acute kidney injury [Recovered/Resolved]
  - Myelosuppression [Recovered/Resolved]
  - Thrombotic microangiopathy [Recovered/Resolved]
  - Thrombosis [Recovered/Resolved]
